FAERS Safety Report 7361204-1 (Version None)
Quarter: 2011Q1

REPORT INFORMATION
  Report Type: 
  Country: None (occurrence: None)
  Receive Date: 20110318
  Receipt Date: 20110304
  Transmission Date: 20110831
  Serious: Yes (Hospitalization)
  Sender: FDA-Public Use
  Company Number: PHHY2011JP15777

PATIENT
  Age: 89 Year
  Sex: Female

DRUGS (6)
  1. CARBAMAZEPINE [Suspect]
     Indication: HERPES ZOSTER
     Dosage: 300 MG, DAILY
     Route: 048
  2. BUPRENORPHINE [Suspect]
     Indication: HERPES ZOSTER
     Dosage: 10 MG/DAY
     Route: 048
  3. BUPRENORPHINE [Suspect]
     Dosage: 0.2 MG, DAILY
     Route: 054
  4. TETRAMIDE [Concomitant]
  5. BUPIVACAINE HCL [Concomitant]
     Dosage: 3 ML/HOUR
  6. MARCAINE [Concomitant]
     Dosage: UNK

REACTIONS (19)
  - SINUS ARRHYTHMIA [None]
  - ATRIAL FIBRILLATION [None]
  - CARDIAC ARREST [None]
  - DIZZINESS [None]
  - MALAISE [None]
  - DEPRESSED LEVEL OF CONSCIOUSNESS [None]
  - NAUSEA [None]
  - COLD SWEAT [None]
  - PYREXIA [None]
  - ATRIOVENTRICULAR BLOCK [None]
  - INCONTINENCE [None]
  - LIVER DISORDER [None]
  - ALANINE AMINOTRANSFERASE INCREASED [None]
  - BRADYCARDIA [None]
  - ASPARTATE AMINOTRANSFERASE INCREASED [None]
  - GAMMA-GLUTAMYLTRANSFERASE DECREASED [None]
  - PAIN [None]
  - SICK SINUS SYNDROME [None]
  - BLOOD ALKALINE PHOSPHATASE INCREASED [None]
